FAERS Safety Report 4546700-4 (Version None)
Quarter: 2005Q1

REPORT INFORMATION
  Report Type: 
  Country: None (occurrence: None)
  Receive Date: 20050106
  Receipt Date: 20040614
  Transmission Date: 20050727
  Serious: Yes (Hospitalization)
  Sender: FDA-Public Use
  Company Number: BE-AMGEN-UK080030

PATIENT
  Sex: Male
  Weight: 74 kg

DRUGS (2)
  1. NEULASTA [Suspect]
     Indication: PERIPHERAL BLOOD STEM CELL APHERESIS
     Route: 058
     Dates: start: 20040402
  2. MELPHALAN [Concomitant]
     Dates: start: 20040401

REACTIONS (5)
  - ENGRAFTMENT SYNDROME [None]
  - FLUID RETENTION [None]
  - PYREXIA [None]
  - RASH [None]
  - SKIN EXFOLIATION [None]
